FAERS Safety Report 5388300-2 (Version None)
Quarter: 2007Q3

REPORT INFORMATION
  Report Type: 
  Country: None (occurrence: None)
  Receive Date: 20070716
  Receipt Date: 20070416
  Transmission Date: 20080115
  Serious: No
  Sender: FDA-Public Use
  Company Number: A0647096A

PATIENT
  Age: 41 Year
  Sex: Female

DRUGS (1)
  1. NICORETTE [Suspect]

REACTIONS (4)
  - DIZZINESS [None]
  - FEELING COLD [None]
  - HOT FLUSH [None]
  - NAUSEA [None]
